FAERS Safety Report 4825404-4 (Version None)
Quarter: 2005Q4

REPORT INFORMATION
  Report Type: 
  Country: None (occurrence: None)
  Receive Date: 20051111
  Receipt Date: 20051108
  Transmission Date: 20060501
  Serious: Yes (Other)
  Sender: FDA-Public Use
  Company Number: ES-MERCK-0511ESP00007

PATIENT
  Age: 60 Year
  Sex: Female
  Weight: 68 kg

DRUGS (4)
  1. FOSAMAX [Suspect]
     Indication: OSTEOPOROSIS
     Route: 048
     Dates: start: 20050703, end: 20050828
  2. LEVOTHYROXINE SODIUM [Concomitant]
     Indication: HYPOTHYROIDISM
     Route: 048
     Dates: start: 20040101
  3. CALCIFEDIOL [Concomitant]
     Indication: OSTEOPOROSIS
     Route: 048
     Dates: start: 20050127
  4. BROMAZEPAM [Concomitant]
     Route: 048

REACTIONS (2)
  - SCOTOMA [None]
  - VISUAL DISTURBANCE [None]
